FAERS Safety Report 21223681 (Version 2)
Quarter: 2022Q3

REPORT INFORMATION
  Report Type: Spontaneous
  Country: US (occurrence: US)
  Receive Date: 20220817
  Receipt Date: 20220818
  Transmission Date: 20221026
  Serious: No
  Sender: FDA-Public Use
  Company Number: US-LUPIN PHARMACEUTICALS INC.-2022-10430

PATIENT

DRUGS (2)
  1. BUPROPION HYDROCHLORIDE XL [Suspect]
     Active Substance: BUPROPION HYDROCHLORIDE
     Indication: Product used for unknown indication
     Dosage: UNK
     Route: 065
     Dates: end: 202109
  2. BUPROPION [Suspect]
     Active Substance: BUPROPION
     Indication: Product used for unknown indication
     Dosage: UNK
     Route: 065
     Dates: start: 202012

REACTIONS (7)
  - Acne [Unknown]
  - Skin disorder [Recovering/Resolving]
  - Hair texture abnormal [Recovering/Resolving]
  - Weight increased [Not Recovered/Not Resolved]
  - Hirsutism [Unknown]
  - Condition aggravated [Unknown]
  - Product substitution issue [Unknown]
